FAERS Safety Report 17729753 (Version 1)
Quarter: 2020Q2

REPORT INFORMATION
  Report Type: Spontaneous
  Country: ES (occurrence: ES)
  Receive Date: 20200430
  Receipt Date: 20200430
  Transmission Date: 20200714
  Serious: Yes (Hospitalization)
  Sender: FDA-Public Use
  Company Number: ES-ASTRAZENECA-2020SE57333

PATIENT
  Age: 80 Year
  Sex: Female
  Weight: 84 kg

DRUGS (5)
  1. QUETIAPINA (1136A) [Suspect]
     Active Substance: QUETIAPINE
     Route: 048
     Dates: start: 20200417, end: 20200421
  2. PREGABALINA [Interacting]
     Active Substance: PREGABALIN
     Indication: LUMBAR SPINAL STENOSIS
     Route: 048
     Dates: start: 20200417
  3. ZALDIAR [Interacting]
     Active Substance: ACETAMINOPHEN\TRAMADOL HYDROCHLORIDE
     Dosage: 37,5 MG/325 MG
     Route: 048
     Dates: start: 20200417, end: 20200420
  4. FENTANILO MATRIX SANDOZ [Interacting]
     Active Substance: FENTANYL
     Indication: LUMBAR SPINAL STENOSIS
     Dosage: 25UG/INHAL EVERY 72 HOURS
     Route: 065
     Dates: start: 20200416, end: 20200421
  5. PAROXETINA (2586A) [Concomitant]
     Active Substance: PAROXETINE
     Route: 048
     Dates: start: 20191029

REACTIONS (2)
  - Femur fracture [Recovering/Resolving]
  - Fall [Recovered/Resolved]

NARRATIVE: CASE EVENT DATE: 20200420
